FAERS Safety Report 22743661 (Version 5)
Quarter: 2023Q4

REPORT INFORMATION
  Report Type: Report from Study
  Country: BR (occurrence: BR)
  Receive Date: 20230724
  Receipt Date: 20231121
  Transmission Date: 20240110
  Serious: Yes (Death, Life-Threatening, Hospitalization, Disabling, Other)
  Sender: FDA-Public Use
  Company Number: BR-TEVA BRAZIL-2023-BR-2908615

PATIENT
  Age: 58 Year
  Sex: Male
  Weight: 52 kg

DRUGS (13)
  1. CARBOPLATIN [Suspect]
     Active Substance: CARBOPLATIN
     Indication: Non-small cell lung cancer
     Dosage: AUC5
     Route: 042
     Dates: start: 20230308, end: 20230308
  2. CARBOPLATIN [Suspect]
     Active Substance: CARBOPLATIN
     Dosage: AUC5
     Route: 042
     Dates: start: 20230328, end: 20230328
  3. CARBOPLATIN [Suspect]
     Active Substance: CARBOPLATIN
     Dosage: AUC5
     Route: 042
     Dates: start: 20230509, end: 20230509
  4. PEMETREXED [Suspect]
     Active Substance: PEMETREXED
     Indication: Non-small cell lung cancer
     Dosage: 500 MILLIGRAM/SQ. METER
     Route: 042
     Dates: start: 20230308, end: 20230308
  5. PEMETREXED [Suspect]
     Active Substance: PEMETREXED
     Dosage: 500 MILLIGRAM/SQ. METER
     Route: 042
     Dates: start: 20230328, end: 20230328
  6. PEMETREXED [Suspect]
     Active Substance: PEMETREXED
     Dosage: 500 MILLIGRAM/SQ. METER
     Route: 042
     Dates: start: 20230418, end: 20230418
  7. PEMETREXED [Suspect]
     Active Substance: PEMETREXED
     Dosage: 500 MILLIGRAM/SQ. METER
     Route: 042
     Dates: start: 20230530, end: 20230530
  8. RETIFANLIMAB [Suspect]
     Active Substance: RETIFANLIMAB
     Indication: Non-small cell lung cancer
     Route: 065
     Dates: start: 20230308
  9. PREGABALIN [Concomitant]
     Active Substance: PREGABALIN
     Indication: Product used for unknown indication
  10. DIPYRONE [Concomitant]
     Active Substance: DIPYRONE
     Indication: Product used for unknown indication
  11. ACETAMINOPHEN\CODEINE PHOSPHATE [Concomitant]
     Active Substance: ACETAMINOPHEN\CODEINE PHOSPHATE
     Indication: Product used for unknown indication
  12. CEFEPIME [Concomitant]
     Active Substance: CEFEPIME HYDROCHLORIDE
     Indication: Product used for unknown indication
     Route: 065
  13. VANCOMYCIN [Concomitant]
     Active Substance: VANCOMYCIN
     Indication: Product used for unknown indication
     Route: 065

REACTIONS (4)
  - Septic shock [Fatal]
  - Febrile neutropenia [Recovered/Resolved]
  - Renal failure [Recovered/Resolved]
  - Diarrhoea [Recovered/Resolved with Sequelae]

NARRATIVE: CASE EVENT DATE: 20230602
